FAERS Safety Report 6376020-7 (Version None)
Quarter: 2009Q3

REPORT INFORMATION
  Report Type: 
  Country: None (occurrence: None)
  Receive Date: 20090924
  Receipt Date: 20090915
  Transmission Date: 20100115
  Serious: Yes (Hospitalization)
  Sender: FDA-Public Use
  Company Number: PHHY2009IT39841

PATIENT
  Age: 28 Year
  Sex: Male

DRUGS (3)
  1. CARBAMAZEPINE [Suspect]
  2. HALOPERIDOL [Suspect]
     Indication: PSYCHOTIC DISORDER
  3. PHENOTHIAZINE [Suspect]
     Indication: PSYCHOTIC DISORDER

REACTIONS (6)
  - ABDOMINAL MASS [None]
  - ABDOMINAL PAIN LOWER [None]
  - COLECTOMY [None]
  - DIARRHOEA HAEMORRHAGIC [None]
  - INTESTINAL ANASTOMOSIS [None]
  - INTUSSUSCEPTION [None]
